FAERS Safety Report 9714530 (Version 2)
Quarter: 2013Q4

REPORT INFORMATION
  Report Type: Spontaneous
  Country: US (occurrence: US)
  Receive Date: 20131126
  Receipt Date: 20131205
  Transmission Date: 20140711
  Serious: No
  Sender: FDA-Public Use
  Company Number: US-TEVA-446307USA

PATIENT
  Age: 78 Year
  Sex: Male
  Weight: 74.46 kg

DRUGS (3)
  1. QNASL [Suspect]
     Indication: RHINITIS ALLERGIC
     Dosage: ^320^, 2 SPRAYS EACH NOSTRIL
     Dates: start: 20131113
  2. PREDNISONE [Concomitant]
     Indication: BRONCHITIS
  3. SYMBICORT [Concomitant]
     Indication: BRONCHITIS

REACTIONS (1)
  - Drug ineffective [Not Recovered/Not Resolved]
